FAERS Safety Report 22859020 (Version 7)
Quarter: 2024Q4

REPORT INFORMATION
  Report Type: Spontaneous
  Country: JP (occurrence: JP)
  Receive Date: 20230824
  Receipt Date: 20241206
  Transmission Date: 20250115
  Serious: Yes (Hospitalization, Disabling, Other)
  Sender: AMGEN
  Company Number: JP-DSJP-DSJ-2023-133834

PATIENT
  Age: 43 Year
  Sex: Female

DRUGS (35)
  1. DENOSUMAB [Suspect]
     Active Substance: DENOSUMAB
     Indication: Metastases to bone
     Dosage: 120 MILLIGRAM, QWK (ONCE EVERY 1 MO, 89 TIMES IN TOTAL)
     Route: 058
     Dates: start: 20160720, end: 20230712
  2. DENOSUMAB [Suspect]
     Active Substance: DENOSUMAB
     Indication: Pathological fracture prophylaxis
     Dosage: UNK
     Route: 065
  3. AMPICILLIN SODIUM [Suspect]
     Active Substance: AMPICILLIN SODIUM
     Indication: Pain
     Dosage: UNK
     Route: 048
     Dates: start: 20200303
  4. GOSERELIN [Concomitant]
     Active Substance: GOSERELIN
     Indication: Breast cancer recurrent
     Dosage: 3.6 MG, ONCE EVERY 1 MO
     Route: 058
     Dates: start: 20070711, end: 20110404
  5. GOSERELIN [Concomitant]
     Active Substance: GOSERELIN
     Indication: Prophylaxis
     Dosage: 3.6 MG, ONCE EVERY 1 MO
     Route: 058
     Dates: start: 20160720, end: 20230809
  6. NOLVADEX [Concomitant]
     Active Substance: TAMOXIFEN CITRATE
     Indication: Breast cancer recurrent
     Dosage: 20 MILLIGRAM, QD
     Route: 048
     Dates: start: 20160606, end: 20231217
  7. EPIRUBICIN HYDROCHLORIDE [Concomitant]
     Active Substance: EPIRUBICIN HYDROCHLORIDE
     Indication: Chemotherapy
     Dosage: 150 MG, ONCE EVERY 4 WK
     Route: 042
     Dates: start: 20070808, end: 20071128
  8. EPIRUBICIN HYDROCHLORIDE [Concomitant]
     Active Substance: EPIRUBICIN HYDROCHLORIDE
     Indication: Prophylaxis
     Dosage: UNK
  9. CYCLOPHOSPHAMIDE [Concomitant]
     Active Substance: CYCLOPHOSPHAMIDE
     Indication: Chemotherapy
     Dosage: 800 MILLIGRAM, Q4WK
     Route: 042
     Dates: start: 20070808, end: 20071128
  10. CYCLOPHOSPHAMIDE [Concomitant]
     Active Substance: CYCLOPHOSPHAMIDE
     Indication: Prophylaxis
     Dosage: UNK
  11. FLUOROURACIL [Concomitant]
     Active Substance: FLUOROURACIL
     Indication: Chemotherapy
     Dosage: 750 MILLIGRAM, Q4WK
     Route: 042
     Dates: start: 20070808, end: 20071128
  12. FLUOROURACIL [Concomitant]
     Active Substance: FLUOROURACIL
     Indication: Prophylaxis
     Dosage: UNK
  13. CALCIUM CARBONATE\CHOLECALCIFEROL\MAGNESIUM CARBONATE [Concomitant]
     Active Substance: CALCIUM CARBONATE\CHOLECALCIFEROL\MAGNESIUM CARBONATE
     Indication: Hypocalcaemia
     Dosage: 2 DF, QD
     Route: 048
     Dates: start: 20160720, end: 20230905
  14. CALCIUM CARBONATE\CHOLECALCIFEROL\MAGNESIUM CARBONATE [Concomitant]
     Active Substance: CALCIUM CARBONATE\CHOLECALCIFEROL\MAGNESIUM CARBONATE
     Indication: Prophylaxis
     Dosage: UNK
  15. FERROUS SULFATE [Concomitant]
     Active Substance: FERROUS SULFATE
     Indication: Anaemia
     Dosage: 105 MG, QD
     Route: 048
     Dates: start: 20220720
  16. MIYA-BM [Concomitant]
     Active Substance: CLOSTRIDIUM BUTYRICUM SPORES STRAIN M-55
     Indication: Gastrointestinal disorder
     Dosage: 1.5 GRAM, TID
     Route: 048
     Dates: start: 20230911
  17. LANSOPRAZOLE [Concomitant]
     Active Substance: LANSOPRAZOLE
     Indication: Gastritis
     Dosage: 15 MG, BID
     Route: 048
     Dates: start: 20230911
  18. CELECOXIB [Concomitant]
     Active Substance: CELECOXIB
     Indication: Pain
     Dosage: 400 MG, BID
     Route: 048
     Dates: start: 20230911
  19. PREGABALIN [Concomitant]
     Active Substance: PREGABALIN
     Indication: Neuralgia
     Dosage: 100 MG, BID
     Route: 048
     Dates: start: 20230911
  20. METHYLCOBALAMIN [Concomitant]
     Active Substance: METHYLCOBALAMIN
     Indication: Neuralgia
     Dosage: 1500 UG, TID
     Route: 048
     Dates: start: 20230911
  21. CALONAL [Concomitant]
     Active Substance: ACETAMINOPHEN
     Indication: Pain
     Dosage: 1500 MG, TID
     Route: 048
     Dates: start: 20230914
  22. TRAMADOL HYDROCHLORIDE [Concomitant]
     Active Substance: TRAMADOL HYDROCHLORIDE
     Indication: Pain
     Dosage: 50 MG, BID
     Route: 048
     Dates: start: 20230914, end: 20230922
  23. Novamin [Concomitant]
     Indication: Prophylaxis of nausea and vomiting
     Dosage: 15 MILLIGRAM, TID
     Route: 048
     Dates: start: 20230914, end: 20230927
  24. FENTANYL [Concomitant]
     Active Substance: FENTANYL
     Indication: Cancer pain
     Dosage: 0.5 MG, QD
     Dates: start: 20230923
  25. Travelmin [Concomitant]
     Indication: Dizziness
     Dosage: 2 DOSAGE FORM, BID
     Route: 048
     Dates: start: 20230928, end: 20231210
  26. MAGNESIUM OXIDE [Concomitant]
     Active Substance: MAGNESIUM OXIDE
     Indication: Constipation
     Dosage: 660 MG, BID
     Route: 048
     Dates: start: 20230930
  27. CEFAZOLIN SODIUM [Concomitant]
     Active Substance: CEFAZOLIN SODIUM
     Indication: Infection
     Dosage: 2 G, BID
     Route: 042
     Dates: start: 20230916, end: 20231023
  28. CEFAZOLIN SODIUM [Concomitant]
     Active Substance: CEFAZOLIN SODIUM
     Dosage: 2 G, BID
     Route: 042
     Dates: start: 20231105, end: 20231113
  29. MEROPENEM [Concomitant]
     Active Substance: MEROPENEM
     Indication: Pneumonia
     Dosage: 1.5 G, TID
     Route: 042
     Dates: start: 20231121, end: 20231123
  30. MEROPENEM [Concomitant]
     Active Substance: MEROPENEM
     Indication: Infection
     Dosage: UNK
  31. CEFMETAZOLE SODIUM [Concomitant]
     Active Substance: CEFMETAZOLE SODIUM
     Indication: Pneumonia
     Dosage: 2 G, BID
     Route: 042
     Dates: start: 20231124, end: 20231127
  32. CEFMETAZOLE SODIUM [Concomitant]
     Active Substance: CEFMETAZOLE SODIUM
     Indication: Infection
     Dosage: UNK
  33. BETAHISTINE MESILATE [Concomitant]
     Active Substance: BETAHISTINE MESILATE
     Indication: Dizziness
     Dosage: 18 MG, TID
     Route: 048
     Dates: start: 20231211
  34. NITROFURANTOIN [Concomitant]
     Active Substance: NITROFURANTOIN
     Indication: Taste disorder
     Dosage: 125 MILLIGRAM, BID
     Route: 048
     Dates: start: 20231211
  35. ANASTROZOLE [Concomitant]
     Active Substance: ANASTROZOLE
     Indication: Breast cancer recurrent
     Dosage: 1 MG, QD
     Route: 048
     Dates: start: 20231218

REACTIONS (8)
  - Subcutaneous abscess [Recovered/Resolved with Sequelae]
  - Osteonecrosis of jaw [Not Recovered/Not Resolved]
  - Mastication disorder [Not Recovered/Not Resolved]
  - Dysphagia [Not Recovered/Not Resolved]
  - Otorrhoea [Not Recovered/Not Resolved]
  - Brain abscess [Not Recovered/Not Resolved]
  - Melaena [Unknown]
  - Haematochezia [Unknown]

NARRATIVE: CASE EVENT DATE: 20170517
